FAERS Safety Report 10004926 (Version 4)
Quarter: 2015Q1

REPORT INFORMATION
  Report Type: Spontaneous
  Country: US (occurrence: US)
  Receive Date: 20140312
  Receipt Date: 20150213
  Transmission Date: 20150720
  Serious: Yes (Hospitalization, Other)
  Sender: FDA-Public Use
  Company Number: US-BAYER-2014-037244

PATIENT
  Age: 20 Year
  Sex: Female
  Weight: 54 kg

DRUGS (1)
  1. MIRENA [Suspect]
     Active Substance: LEVONORGESTREL
     Indication: CONTRACEPTION
     Dosage: 20 MCG/24HR, CONT
     Route: 015
     Dates: start: 200709, end: 20070929

REACTIONS (10)
  - Device issue [None]
  - Scar [None]
  - Uterine perforation [None]
  - Abortion spontaneous [None]
  - Pain [None]
  - Anxiety [None]
  - Emotional distress [None]
  - Device breakage [None]
  - Injury [None]
  - Uterine injury [None]

NARRATIVE: CASE EVENT DATE: 2007
